FAERS Safety Report 11269511 (Version 1)
Quarter: 2015Q3

REPORT INFORMATION
  Report Type: Spontaneous
  Country: FR (occurrence: None)
  Receive Date: 20150710
  Receipt Date: 20150710
  Transmission Date: 20151125
  Serious: Yes (Hospitalization, Other)
  Sender: FDA-Public Use
  Company Number: ADR-2015-01283

PATIENT

DRUGS (1)
  1. BACLOFEN (ORAL) [Suspect]
     Active Substance: BACLOFEN
     Indication: ALCOHOLISM

REACTIONS (3)
  - Hallucination [None]
  - Intentional product misuse [None]
  - Intentional overdose [None]

NARRATIVE: CASE EVENT DATE: 20150506
